FAERS Safety Report 4485500-0 (Version None)
Quarter: 2004Q4

REPORT INFORMATION
  Report Type: 
  Country: None (occurrence: None)
  Receive Date: 20041026
  Receipt Date: 20041022
  Transmission Date: 20050328
  Serious: Yes (Hospitalization, Other)
  Sender: FDA-Public Use
  Company Number: PHBS2004US14136

PATIENT
  Age: 38 Year
  Sex: Male

DRUGS (1)
  1. SALAGEN [Suspect]
     Route: 048

REACTIONS (2)
  - BRONCHOSPASM [None]
  - PNEUMONIA [None]
